FAERS Safety Report 17078442 (Version 1)
Quarter: 2019Q4

REPORT INFORMATION
  Report Type: Spontaneous
  Country: ES (occurrence: ES)
  Receive Date: 20191126
  Receipt Date: 20191126
  Transmission Date: 20200122
  Serious: Yes (Other)
  Sender: FDA-Public Use
  Company Number: NVSC2019ES045752

PATIENT
  Age: 51 Year
  Sex: Female

DRUGS (2)
  1. CEFEPIMA [Concomitant]
     Active Substance: CEFEPIME HYDROCHLORIDE
     Indication: RESPIRATORY TRACT INFECTION
     Dosage: 2 G, Q8H
     Route: 042
     Dates: start: 20190716, end: 20190722
  2. VORICONAZOLE. [Suspect]
     Active Substance: VORICONAZOLE
     Indication: BRONCHOPULMONARY ASPERGILLOSIS
     Dosage: 300 MG, Q12H
     Route: 042
     Dates: start: 20190716, end: 20190722

REACTIONS (1)
  - Mixed liver injury [Recovered/Resolved]

NARRATIVE: CASE EVENT DATE: 20190721
